APPROVED DRUG PRODUCT: IBUPROFEN
Active Ingredient: IBUPROFEN
Strength: 50MG
Dosage Form/Route: TABLET, CHEWABLE;ORAL
Application: A076359 | Product #001
Applicant: L PERRIGO CO
Approved: Jan 16, 2004 | RLD: No | RS: No | Type: DISCN